FAERS Safety Report 17667823 (Version 2)
Quarter: 2020Q2

REPORT INFORMATION
  Report Type: Spontaneous
  Country: US (occurrence: US)
  Receive Date: 20200414
  Receipt Date: 20200526
  Transmission Date: 20200713
  Serious: No
  Sender: FDA-Public Use
  Company Number: US-JNJFOC-20200405393

PATIENT
  Age: 48 Year
  Sex: Female
  Weight: 63.11 kg

DRUGS (2)
  1. TREMFYA [Suspect]
     Active Substance: GUSELKUMAB
     Indication: PSORIASIS
     Route: 058
     Dates: start: 2018
  2. TREMFYA [Suspect]
     Active Substance: GUSELKUMAB

REACTIONS (3)
  - Product dose omission [Unknown]
  - Accidental exposure to product [Unknown]
  - Needle issue [Unknown]

NARRATIVE: CASE EVENT DATE: 20200402
